FAERS Safety Report 9344205 (Version 2)
Quarter: 2013Q2

REPORT INFORMATION
  Report Type: Spontaneous
  Country: FR (occurrence: FR)
  Receive Date: 20130612
  Receipt Date: 20130617
  Transmission Date: 20140414
  Serious: Yes (Hospitalization)
  Sender: FDA-Public Use
  Company Number: FR-FRI-1000045810

PATIENT
  Age: 68 Year
  Sex: Female

DRUGS (8)
  1. MILNACIPRAN [Suspect]
     Indication: DEPRESSION
     Dosage: 100 MG
     Route: 048
     Dates: start: 20130409, end: 20130424
  2. LAROXYL [Concomitant]
     Dosage: 5 GTT AM; 5 GTT NOON; 10 GTT PM
  3. FIXICAL D3 [Concomitant]
     Dosage: 500/400
  4. GINKOR FORT [Concomitant]
  5. PANTOPRAZOLE [Concomitant]
     Dosage: 20 MG
  6. ZALDIAR [Concomitant]
     Dosage: 112.5/975 MG
     Dates: start: 20130409
  7. INORIAL [Concomitant]
     Dosage: 20 MG
  8. UVEDOSE [Concomitant]

REACTIONS (1)
  - Rash maculo-papular [Recovered/Resolved]
